FAERS Safety Report 7034554-6 (Version None)
Quarter: 2010Q4

REPORT INFORMATION
  Report Type: 
  Country: None (occurrence: None)
  Receive Date: 20101008
  Receipt Date: 20101006
  Transmission Date: 20110411
  Serious: Yes (Other)
  Sender: FDA-Public Use
  Company Number: GB-BRISTOL-MYERS SQUIBB COMPANY-15317001

PATIENT
  Age: 30 Year
  Sex: Male

DRUGS (11)
  1. AZTREONAM [Suspect]
     Indication: CYSTIC FIBROSIS
     Route: 042
  2. CEFTAZIDIME [Interacting]
     Indication: CYSTIC FIBROSIS
     Route: 042
  3. GENTAMICIN [Concomitant]
     Indication: CYSTIC FIBROSIS
  4. MEROPENEM [Concomitant]
     Indication: CYSTIC FIBROSIS
  5. PENICILLIN [Concomitant]
     Indication: CYSTIC FIBROSIS
  6. AMINOGLYCOSIDE [Concomitant]
     Indication: CYSTIC FIBROSIS
  7. SULFONAMIDE [Concomitant]
     Indication: CYSTIC FIBROSIS
  8. ERYTHROMYCIN [Concomitant]
     Indication: CYSTIC FIBROSIS
  9. CLARITHROMYCIN [Concomitant]
     Indication: CYSTIC FIBROSIS
  10. POLYMYCIN B SULFATE [Concomitant]
     Indication: CYSTIC FIBROSIS
  11. TOBRAMYCIN [Concomitant]
     Indication: CYSTIC FIBROSIS
     Dosage: NEBULIZER

REACTIONS (1)
  - DRUG ERUPTION [None]
